FAERS Safety Report 8439082-9 (Version None)
Quarter: 2012Q2

REPORT INFORMATION
  Report Type: 
  Country: None (occurrence: None)
  Receive Date: 20120323
  Receipt Date: 20110902
  Transmission Date: 20120825
  Serious: Yes (Other)
  Sender: FDA-Public Use
  Company Number: 163-21880-11053537

PATIENT
  Age: 72 Year
  Sex: Female

DRUGS (8)
  1. GLIPIZIDE [Concomitant]
  2. DIGOXIN [Concomitant]
  3. SIMVASTATIN [Concomitant]
  4. METFFORMIN HYDROCHLORIDE [Concomitant]
  5. REVLIMID [Suspect]
     Indication: MULTIPLE MYELOMA
     Dosage: 15 MG, DAILY FOR 21 DAYS ON 7 DAYS
     Dates: start: 20101019
  6. WARFARIN SODIUM [Concomitant]
  7. LEVOTHYROXINE SODIUM [Concomitant]
  8. LATANOPROST [Concomitant]

REACTIONS (1)
  - HAEMOGLOBIN DECREASED [None]
